FAERS Safety Report 15939170 (Version 5)
Quarter: 2020Q1

REPORT INFORMATION
  Report Type: Spontaneous
  Country: US (occurrence: US)
  Receive Date: 20190208
  Receipt Date: 20200319
  Transmission Date: 20200409
  Serious: Yes (Other)
  Sender: FDA-Public Use
  Company Number: US-PFIZER INC-2019058161

PATIENT
  Age: 65 Year
  Sex: Female
  Weight: 68.4 kg

DRUGS (6)
  1. VITAMIN D3 [Concomitant]
     Active Substance: CHOLECALCIFEROL
     Dosage: 1000 IU, UNK
  2. NIACINAMIDE [Concomitant]
     Active Substance: NIACINAMIDE
     Dosage: 500 MG, UNK
  3. CALCIUM + VIT D [Concomitant]
     Active Substance: CALCIUM\VITAMIN D
     Dosage: UNK(1200 MG CALCIUM WITH VITAMIN D 25 MCG)
  4. RESTASIS [Concomitant]
     Active Substance: CYCLOSPORINE
     Dosage: 2 GTT, 2X/DAY [0.05% ONE DROP BOTH EYES EVERY 12 HOURS]
  5. XELJANZ XR [Suspect]
     Active Substance: TOFACITINIB CITRATE
     Indication: RHEUMATOID ARTHRITIS
     Dosage: 11 MG, 1X/DAY (11MG, 1 TABLET BY MOUTH DAILY IN THE MORNING)
     Route: 048
     Dates: start: 2017
  6. BIOTIN [Concomitant]
     Active Substance: BIOTIN
     Dosage: 2500 UG, UNK

REACTIONS (9)
  - Fibula fracture [Not Recovered/Not Resolved]
  - Ligament injury [Not Recovered/Not Resolved]
  - Dysphagia [Recovered/Resolved]
  - Low density lipoprotein increased [Recovered/Resolved]
  - Joint swelling [Recovered/Resolved]
  - Blood triglycerides increased [Recovered/Resolved]
  - Hypersensitivity [Recovered/Resolved]
  - Nasopharyngitis [Recovered/Resolved]
  - Body height decreased [Recovered/Resolved]

NARRATIVE: CASE EVENT DATE: 201912
